FAERS Safety Report 9770717 (Version 1)
Quarter: 2013Q4

REPORT INFORMATION
  Report Type: Spontaneous
  Country: US (occurrence: US)
  Receive Date: 20131218
  Receipt Date: 20131218
  Transmission Date: 20140711
  Serious: No
  Sender: FDA-Public Use
  Company Number: US-PFIZER INC-2013362247

PATIENT
  Age: 24 Year
  Sex: Female
  Weight: 58.96 kg

DRUGS (3)
  1. GEODON [Suspect]
     Indication: BIPOLAR DISORDER
     Dosage: 20 MG, DAILY
     Dates: start: 2013, end: 2013
  2. GEODON [Suspect]
     Dosage: 40 MG, DAILY
     Dates: start: 2013, end: 2013
  3. GEODON [Suspect]
     Dosage: 80 MG, DAILY
     Dates: start: 2013, end: 20131207

REACTIONS (2)
  - Depression [Unknown]
  - Malaise [Unknown]
